FAERS Safety Report 19602190 (Version 1)
Quarter: 2021Q3

REPORT INFORMATION
  Report Type: Spontaneous
  Country: US (occurrence: US)
  Receive Date: 20210723
  Receipt Date: 20210723
  Transmission Date: 20211014
  Serious: No
  Sender: FDA-Public Use
  Company Number: US-SA-2021SA238612

PATIENT
  Age: 30 Year
  Sex: Female

DRUGS (4)
  1. ALBUTEROL HFA [Concomitant]
     Active Substance: ALBUTEROL SULFATE
  2. METOCLOPRAM [Concomitant]
     Active Substance: METOCLOPRAMIDE
  3. DUPIXENT [Suspect]
     Active Substance: DUPILUMAB
     Indication: ASTHMA
     Dosage: 600 MG (300 MG X 2 ), 1X
     Route: 058
     Dates: start: 20200829
  4. REGULIN [BETANIDINE SULFATE] [Concomitant]

REACTIONS (4)
  - Injection site rash [Not Recovered/Not Resolved]
  - Asthma [Not Recovered/Not Resolved]
  - Regurgitation [Not Recovered/Not Resolved]
  - Product use issue [Unknown]

NARRATIVE: CASE EVENT DATE: 20200829
